FAERS Safety Report 5627838-7 (Version None)
Quarter: 2008Q1

REPORT INFORMATION
  Report Type: 
  Country: None (occurrence: None)
  Receive Date: 20080215
  Receipt Date: 20080206
  Transmission Date: 20080703
  Serious: Yes (Life-Threatening, Hospitalization)
  Sender: FDA-Public Use
  Company Number: ES-ASTRAZENECA-2007AP08134

PATIENT
  Age: 57 Year
  Sex: Female

DRUGS (9)
  1. MEROPENEM [Suspect]
     Dates: start: 20071125, end: 20071212
  2. CUBICIN [Suspect]
     Indication: CARDIAC DISORDER
     Route: 042
     Dates: start: 20071125, end: 20071212
  3. ENALAPRIL MALEATE [Concomitant]
  4. TORSEMIDE [Concomitant]
  5. SINTROM [Concomitant]
  6. LANACORDIN [Concomitant]
  7. OXYGEN [Concomitant]
  8. LAMOTRIGINE [Concomitant]
  9. VANCOMYCIN [Concomitant]

REACTIONS (5)
  - BLOOD CREATININE INCREASED [None]
  - CARDIAC ARREST [None]
  - EOSINOPHILIA [None]
  - NEPHRITIS INTERSTITIAL [None]
  - RASH MACULO-PAPULAR [None]
